FAERS Safety Report 5352538-0 (Version None)
Quarter: 2007Q2

REPORT INFORMATION
  Report Type: 
  Country: None (occurrence: None)
  Receive Date: 20070607
  Receipt Date: 20070607
  Transmission Date: 20071010
  Serious: Yes (Hospitalization)
  Sender: FDA-Public Use
  Company Number: None

PATIENT
  Age: 56 Year
  Sex: Male

DRUGS (3)
  1. FELODIPINE [Suspect]
     Indication: ANGINA PECTORIS
     Dosage: 10MG EVERY DAY PO
     Route: 048
     Dates: start: 20050308, end: 20070601
  2. FELODIPINE [Suspect]
     Indication: HYPERTENSION
     Dosage: 10MG EVERY DAY PO
     Route: 048
     Dates: start: 20050308, end: 20070601
  3. ISOSORBIDE DINITRATE [Suspect]
     Dosage: 5MG TID PO
     Route: 048

REACTIONS (2)
  - HYPOTENSION [None]
  - SYNCOPE [None]
